FAERS Safety Report 9502699 (Version 1)
Quarter: 2013Q3

REPORT INFORMATION
  Report Type: Spontaneous
  Country: US (occurrence: US)
  Receive Date: 20130906
  Receipt Date: 20130906
  Transmission Date: 20140515
  Serious: No
  Sender: FDA-Public Use
  Company Number: US-BAYER-2013-107779

PATIENT
  Age: 74 Year
  Sex: Male
  Weight: 91 kg

DRUGS (8)
  1. ALEVE TABLET [Suspect]
     Indication: ANALGESIC THERAPY
     Dosage: 2 DF, ONCE
     Route: 048
     Dates: start: 20130903, end: 20130903
  2. OXYCODONE [Concomitant]
  3. EQUATE ASPIRIN [Concomitant]
  4. CRESTOR [Concomitant]
  5. ATENOLOL [Concomitant]
  6. LANTUS [Concomitant]
     Dosage: 30 UNITS
  7. CHLORTHALIDONE [Concomitant]
     Dosage: 25 MG, UNK
  8. METFORMIN [Concomitant]
     Dosage: 750 MG, UNK

REACTIONS (2)
  - Urticaria [Not Recovered/Not Resolved]
  - Pruritus generalised [Not Recovered/Not Resolved]
